FAERS Safety Report 11673840 (Version 1)
Quarter: 2015Q4

REPORT INFORMATION
  Report Type: Spontaneous
  Country: US (occurrence: US)
  Receive Date: 20151027
  Receipt Date: 20151027
  Transmission Date: 20160304
  Serious: No
  Sender: FDA-Public Use
  Company Number: US-ELI_LILLY_AND_COMPANY-US201007006507

PATIENT
  Sex: Female
  Weight: 43.08 kg

DRUGS (2)
  1. FORTEO [Suspect]
     Active Substance: TERIPARATIDE
     Dosage: 20 UG, QOD
  2. FORTEO [Suspect]
     Active Substance: TERIPARATIDE
     Indication: OSTEOPOROSIS
     Dosage: 20 UG, DAILY (1/D)

REACTIONS (14)
  - Fatigue [Recovering/Resolving]
  - Weight decreased [Unknown]
  - Musculoskeletal pain [Recovering/Resolving]
  - Abdominal discomfort [Unknown]
  - Palpitations [Unknown]
  - Muscle spasms [Recovering/Resolving]
  - Bone graft [Unknown]
  - Inappropriate schedule of drug administration [Not Recovered/Not Resolved]
  - Dyspepsia [Recovering/Resolving]
  - Back pain [Recovering/Resolving]
  - Dizziness [Unknown]
  - Bone disorder [Unknown]
  - Muscle spasms [Unknown]
  - Heart rate increased [Unknown]
